FAERS Safety Report 9727268 (Version 1)
Quarter: 2013Q4

REPORT INFORMATION
  Report Type: Spontaneous
  Country: US (occurrence: US)
  Receive Date: 20131203
  Receipt Date: 20131203
  Transmission Date: 20140711
  Serious: No
  Sender: FDA-Public Use
  Company Number: US-PFIZER INC-2013343378

PATIENT
  Sex: Female

DRUGS (10)
  1. PROCARDIA [Suspect]
     Dosage: UNK
  2. DETROL [Suspect]
     Dosage: UNK
  3. SKELAXIN [Suspect]
     Dosage: UNK
  4. CYMBALTA [Suspect]
     Dosage: UNK
  5. TALWIN [Suspect]
     Dosage: UNK
  6. SOMA COMPOUND [Suspect]
     Dosage: UNK
  7. HALOTHANE [Suspect]
     Dosage: UNK
  8. ASPIRIN [Suspect]
     Dosage: UNK
  9. CODEINE [Suspect]
     Dosage: UNK
  10. DARIFENACIN HYDROBROMIDE [Suspect]
     Dosage: UNK

REACTIONS (1)
  - Drug hypersensitivity [Unknown]
